FAERS Safety Report 10906606 (Version 1)
Quarter: 2015Q1

REPORT INFORMATION
  Report Type: Spontaneous
  Country: FR (occurrence: FR)
  Receive Date: 20150312
  Receipt Date: 20150312
  Transmission Date: 20150721
  Serious: Yes (Hospitalization)
  Sender: FDA-Public Use
  Company Number: FR-ACCORD-029206

PATIENT
  Age: 39 Year
  Sex: Male

DRUGS (5)
  1. QUETIAPINE [Suspect]
     Active Substance: QUETIAPINE
     Indication: BIPOLAR DISORDER
     Dosage: INITIALLY RECEIVED 100 MG, THEN 200 MG ON SECOND DAY AND 300 MG FROM THIRD DAY ON.
  2. VALPROMIDE [Concomitant]
     Active Substance: VALPROMIDE
     Indication: BIPOLAR DISORDER
     Dosage: STARTED ON DAY 5
  3. PRAZEPAM [Concomitant]
     Active Substance: PRAZEPAM
     Dosage: STARTED ON DAY 7
  4. LACTULOSE. [Concomitant]
     Active Substance: LACTULOSE
     Indication: LAXATIVE SUPPORTIVE CARE
  5. TROPATEPINE/TROPATEPINE HYDROCHLORIDE [Suspect]
     Active Substance: TROPATEPINE HYDROCHLORIDE
     Indication: PROPHYLAXIS

REACTIONS (2)
  - Metabolic acidosis [Unknown]
  - Colitis ischaemic [Recovered/Resolved]
